FAERS Safety Report 17217999 (Version 1)
Quarter: 2019Q4

REPORT INFORMATION
  Report Type: Other
  Country: CA (occurrence: CA)
  Receive Date: 20191231
  Receipt Date: 20191231
  Transmission Date: 20200122
  Serious: Yes (Other)
  Sender: FDA-Public Use
  Company Number: CA-EMCURE PHARMACEUTICALS LTD-2019-EPL-1243

PATIENT
  Age: 23 Year
  Sex: Female
  Weight: 73 kg

DRUGS (6)
  1. LAMICTAL [Concomitant]
     Active Substance: LAMOTRIGINE
     Dosage: UNK
  2. TYLENOL WITH CODEINE [Concomitant]
     Active Substance: ACETAMINOPHEN\CODEINE PHOSPHATE
     Dosage: UNK
  3. SEROQUEL [Concomitant]
     Active Substance: QUETIAPINE FUMARATE
     Dosage: UNK
  4. RIZATRIPTAN. [Suspect]
     Active Substance: RIZATRIPTAN
     Indication: MIGRAINE
     Dosage: 10 MILLIGRAM, PRN
     Route: 048
  5. VITAMIN D                          /00318501/ [Concomitant]
     Active Substance: CHOLECALCIFEROL
     Dosage: UNK
  6. RIZATRIPTAN. [Suspect]
     Active Substance: RIZATRIPTAN
     Dosage: 15 MILLIGRAM, PRN
     Route: 048

REACTIONS (10)
  - Hypoaesthesia [Unknown]
  - Muscular weakness [Unknown]
  - Paraesthesia [Unknown]
  - Somnolence [Unknown]
  - Chest discomfort [Unknown]
  - Pollakiuria [Unknown]
  - Dyspepsia [Unknown]
  - Dizziness [Unknown]
  - Fatigue [Unknown]
  - Head discomfort [Unknown]
